FAERS Safety Report 8947327 (Version 2)
Quarter: 2013Q1

REPORT INFORMATION
  Report Type: Spontaneous
  Country: US (occurrence: US)
  Receive Date: 20121205
  Receipt Date: 20130110
  Transmission Date: 20140127
  Serious: No
  Sender: FDA-Public Use
  Company Number: US-009507513-1212USA000558

PATIENT
  Age: 71 Year
  Sex: Female
  Weight: 83.9 kg

DRUGS (10)
  1. CLARITIN REDITABS [Suspect]
     Indication: NASAL OEDEMA
     Dosage: UNK, UNKNOWN
     Route: 048
     Dates: start: 20121123, end: 20121123
  2. CLARITIN REDITABS [Suspect]
     Indication: THROAT IRRITATION
  3. ATENOLOL [Concomitant]
     Indication: HYPERTENSION
     Dosage: 25 MG, QD
  4. SIMVASTATIN [Concomitant]
     Indication: BLOOD CHOLESTEROL
     Dosage: 20 MG, QD
  5. CALCIUM (UNSPECIFIED) [Concomitant]
     Indication: PRODUCT USED FOR UNKNOWN INDICATION
     Dosage: UNK, UNKNOWN
  6. VITAMIN D (UNSPECIFIED) [Concomitant]
     Indication: PRODUCT USED FOR UNKNOWN INDICATION
     Dosage: UNK, UNKNOWN
  7. PHYTONADIONE [Concomitant]
     Dosage: 500 MG, QD
  8. CENTRUM SILVER [Concomitant]
     Indication: PRODUCT USED FOR UNKNOWN INDICATION
     Dosage: UNK, UNKNOWN
  9. VITAMINS (UNSPECIFIED) [Concomitant]
     Indication: PRODUCT USED FOR UNKNOWN INDICATION
     Dosage: UNK, UNKNOWN
  10. PROAIR HFA [Concomitant]
     Indication: ASTHMA
     Dosage: UNK, PRN

REACTIONS (2)
  - Hypoaesthesia oral [Recovered/Resolved]
  - Adverse reaction [Recovered/Resolved]
